FAERS Safety Report 15467282 (Version 1)
Quarter: 2018Q4

REPORT INFORMATION
  Report Type: Spontaneous
  Country: US (occurrence: US)
  Receive Date: 20181005
  Receipt Date: 20181005
  Transmission Date: 20190204
  Serious: No
  Sender: FDA-Public Use
  Company Number: US-BIOGEN-2018BI00640585

PATIENT
  Sex: Female

DRUGS (1)
  1. TYSABRI [Suspect]
     Active Substance: NATALIZUMAB
     Indication: MULTIPLE SCLEROSIS
     Route: 065
     Dates: start: 20130422

REACTIONS (5)
  - Peripheral swelling [Unknown]
  - Drug hypersensitivity [Unknown]
  - Urticaria [Unknown]
  - Limb injury [Unknown]
  - Mobility decreased [Unknown]
